FAERS Safety Report 12459132 (Version 1)
Quarter: 2016Q2

REPORT INFORMATION
  Report Type: Report from Study
  Country: US (occurrence: US)
  Receive Date: 20160613
  Receipt Date: 20160613
  Transmission Date: 20160815
  Serious: Yes (Disabling, Other)
  Sender: FDA-Public Use
  Company Number: PHEH2016US014244

PATIENT
  Sex: Female

DRUGS (1)
  1. SANDOSTATIN [Suspect]
     Active Substance: OCTREOTIDE ACETATE
     Indication: CARCINOID SYNDROME
     Dosage: UNK
     Route: 065
     Dates: start: 2007

REACTIONS (15)
  - Balance disorder [Unknown]
  - Immune system disorder [Unknown]
  - Hypertension [Recovering/Resolving]
  - Gait disturbance [Unknown]
  - Muscle atrophy [Unknown]
  - Muscular weakness [Unknown]
  - Pain [Not Recovered/Not Resolved]
  - Asthma [Unknown]
  - Grip strength decreased [Unknown]
  - Myositis [Not Recovered/Not Resolved]
  - Choking [Unknown]
  - Dysphagia [Unknown]
  - Myalgia [Not Recovered/Not Resolved]
  - Speech disorder [Unknown]
  - Muscle fatigue [Unknown]

NARRATIVE: CASE EVENT DATE: 2012
